FAERS Safety Report 18710208 (Version 1)
Quarter: 2021Q1

REPORT INFORMATION
  Report Type: Spontaneous
  Country: US (occurrence: US)
  Receive Date: 20210106
  Receipt Date: 20210106
  Transmission Date: 20210419
  Serious: Yes (Hospitalization, Other)
  Sender: FDA-Public Use
  Company Number: US-VISTAPHARM, INC.-VER202012-002265

PATIENT
  Age: 48 Year
  Sex: Female

DRUGS (2)
  1. GABAPENTIN. [Suspect]
     Active Substance: GABAPENTIN
     Dosage: 100 MG AT NIGHT
     Route: 048
  2. GABAPENTIN. [Suspect]
     Active Substance: GABAPENTIN
     Indication: PRODUCT USED FOR UNKNOWN INDICATION
     Dosage: 800 MG

REACTIONS (6)
  - Musculoskeletal stiffness [Recovering/Resolving]
  - Toxicity to various agents [Recovering/Resolving]
  - Simple partial seizures [Recovering/Resolving]
  - Myoclonus [Recovering/Resolving]
  - Gaze palsy [Recovering/Resolving]
  - Confusional state [Recovered/Resolved]
